FAERS Safety Report 24580151 (Version 1)
Quarter: 2024Q4

REPORT INFORMATION
  Report Type: Spontaneous
  Country: RU (occurrence: RU)
  Receive Date: 20241105
  Receipt Date: 20241105
  Transmission Date: 20250115
  Serious: Yes (Other)
  Sender: ABBVIE
  Company Number: RU-RICHTER-2024-GR-011899

PATIENT
  Age: 19 Year
  Sex: Male
  Weight: 79 kg

DRUGS (3)
  1. CARIPRAZINE [Suspect]
     Active Substance: CARIPRAZINE
     Indication: Product use in unapproved indication
     Dosage: 3 MG A DAY
     Route: 048
     Dates: start: 20241009
  2. TRIMEPRAZINE TARTRATE [Concomitant]
     Active Substance: TRIMEPRAZINE TARTRATE
     Indication: Product used for unknown indication
     Dosage: 5 MG A DAY
     Route: 048
     Dates: start: 20241007, end: 20241009
  3. PAROXETINE [Concomitant]
     Active Substance: PAROXETINE
     Indication: Depression
     Dosage: 20 MG A DAY
     Route: 048
     Dates: start: 20240927

REACTIONS (2)
  - Parkinsonism [Recovering/Resolving]
  - Product use in unapproved indication [Not Recovered/Not Resolved]

NARRATIVE: CASE EVENT DATE: 20241009
